FAERS Safety Report 9166726 (Version 2)
Quarter: 2013Q1

REPORT INFORMATION
  Report Type: Report from Study
  Country: US (occurrence: US)
  Receive Date: 20130315
  Receipt Date: 20130324
  Transmission Date: 20140127
  Serious: Yes (Hospitalization)
  Sender: FDA-Public Use
  Company Number: US-ABBOTT-13P-163-1054536-00

PATIENT
  Age: 60 None
  Sex: Female

DRUGS (10)
  1. HUMIRA [Suspect]
     Indication: PSORIATIC ARTHROPATHY
  2. HUMIRA [Suspect]
     Dates: start: 20130311
  3. Z PACK [Suspect]
     Indication: INFLUENZA
  4. Z PACK [Suspect]
     Indication: BRONCHITIS
  5. CODEINE COUGH SYRUP [Concomitant]
     Indication: PRODUCT USED FOR UNKNOWN INDICATION
  6. LUNESTA [Concomitant]
     Indication: INSOMNIA
     Dosage: BEDTIME
     Route: 048
  7. SPRINX [Concomitant]
     Indication: ANTIINFLAMMATORY THERAPY
     Dosage: SPRAY DAILY
     Route: 045
  8. PRILOSEC [Concomitant]
     Indication: GASTRIC DISORDER
     Route: 048
  9. SENECOT [Concomitant]
     Indication: CONSTIPATION
     Route: 048
  10. HYDROCODONE [Concomitant]
     Indication: PAIN
     Dosage: 10/325MG 4-6 DAILY
     Route: 048

REACTIONS (11)
  - Rotator cuff syndrome [Recovering/Resolving]
  - Drug effect decreased [Unknown]
  - Influenza [Recovered/Resolved]
  - Cough [Recovered/Resolved]
  - Bronchitis [Recovered/Resolved]
  - Pain [Not Recovered/Not Resolved]
  - Polyp [Not Recovered/Not Resolved]
  - Diverticulum [Not Recovered/Not Resolved]
  - Urticaria [Recovering/Resolving]
  - Feeling hot [Not Recovered/Not Resolved]
  - Impaired work ability [None]
